FAERS Safety Report 13537240 (Version 1)
Quarter: 2017Q2

REPORT INFORMATION
  Report Type: Report from Study
  Country: US (occurrence: BR)
  Receive Date: 20170511
  Receipt Date: 20170511
  Transmission Date: 20170830
  Serious: Yes (Other)
  Sender: FDA-Public Use
  Company Number: US-SUNOVION-2017SUN001995

PATIENT
  Sex: Female
  Weight: 60 kg

DRUGS (2)
  1. INDACATEROL AND GLYCOPYRROLATE [Suspect]
     Active Substance: GLYCOPYRROLATE\INDACATEROL MALEATE
     Indication: CHRONIC OBSTRUCTIVE PULMONARY DISEASE
     Dosage: 1 DF, UNK
     Route: 055
     Dates: start: 20170310
  2. OXIMAX [Concomitant]
     Active Substance: MOMETASONE FUROATE

REACTIONS (13)
  - Osteoporosis [Unknown]
  - Spinal disorder [Unknown]
  - Nonspecific reaction [Unknown]
  - Anxiety [Unknown]
  - Device use error [Unknown]
  - Malaise [Unknown]
  - Feeling abnormal [Unknown]
  - Sensitivity to weather change [Unknown]
  - Dyspnoea [Unknown]
  - Influenza like illness [Recovering/Resolving]
  - Drug intolerance [Unknown]
  - Headache [Unknown]
  - Lung disorder [Unknown]
